FAERS Safety Report 6024819-9 (Version None)
Quarter: 2008Q4

REPORT INFORMATION
  Report Type: 
  Country: None (occurrence: None)
  Receive Date: 20081224
  Receipt Date: 20081216
  Transmission Date: 20090506
  Serious: Yes (Life-Threatening, Hospitalization)
  Sender: FDA-Public Use
  Company Number: GXKR2008NL12004

PATIENT
  Age: 52 Year
  Sex: Female

DRUGS (2)
  1. AMITRIPTYLINE HCL [Suspect]
  2. OLANZAPINE [Concomitant]

REACTIONS (10)
  - BRUGADA SYNDROME [None]
  - BUNDLE BRANCH BLOCK RIGHT [None]
  - COMA [None]
  - ELECTROCARDIOGRAM QRS COMPLEX PROLONGED [None]
  - ELECTROCARDIOGRAM ST SEGMENT ELEVATION [None]
  - OVERDOSE [None]
  - SINUS TACHYCARDIA [None]
  - THERAPEUTIC AGENT TOXICITY [None]
  - VENTRICULAR TACHYARRHYTHMIA [None]
  - VENTRICULAR TACHYCARDIA [None]
